FAERS Safety Report 10210522 (Version 1)
Quarter: 2014Q2

REPORT INFORMATION
  Report Type: Spontaneous
  Country: FR (occurrence: FR)
  Receive Date: 20140602
  Receipt Date: 20140602
  Transmission Date: 20141212
  Serious: Yes (Hospitalization)
  Sender: FDA-Public Use
  Company Number: FR-SA-2014SA066816

PATIENT
  Age: 68 Year
  Sex: Female

DRUGS (7)
  1. LOVENOX [Suspect]
     Indication: PULMONARY EMBOLISM
     Route: 058
     Dates: start: 20140319, end: 20140325
  2. PREVISCAN [Suspect]
     Indication: PULMONARY EMBOLISM
     Route: 048
     Dates: start: 20140321, end: 20140419
  3. NORFLOXACIN [Concomitant]
     Indication: URINARY TRACT INFECTION
     Route: 048
     Dates: start: 20140402, end: 20140407
  4. FOLIC ACID [Concomitant]
     Route: 048
     Dates: start: 20140402, end: 20140413
  5. LIPANTHYL [Concomitant]
     Route: 048
  6. INEXIUM [Concomitant]
     Dosage: STRENGTH: 40 MG
     Route: 048
  7. DOLIPRANE [Concomitant]
     Route: 048

REACTIONS (6)
  - Drug reaction with eosinophilia and systemic symptoms [Recovering/Resolving]
  - Rash maculo-papular [Recovering/Resolving]
  - Pyrexia [Recovering/Resolving]
  - Eosinophilia [Recovering/Resolving]
  - Renal failure [Recovering/Resolving]
  - Hepatocellular injury [Recovering/Resolving]
